FAERS Safety Report 10038551 (Version 1)
Quarter: 2014Q1

REPORT INFORMATION
  Report Type: Spontaneous
  Country: US (occurrence: None)
  Receive Date: 20140306
  Receipt Date: 20140306
  Transmission Date: 20141002
  Serious: Yes (Hospitalization)
  Sender: FDA-Public Use
  Company Number: 163-21880-13111759

PATIENT
  Age: 85 Year
  Sex: Female
  Weight: 72.12 kg

DRUGS (14)
  1. REVLIMID(LENALIDOMIDE)(5 MILLIGRAM, CAPSULES) [Suspect]
     Indication: PLASMA CELL MYELOMA
     Route: 048
     Dates: start: 20120503
  2. FUROSEMIDE(FUROSEMIDE) [Concomitant]
  3. NITROQUICK(GLYCERYL TRINTRATE) [Concomitant]
  4. RENVELA(SEVELAMER CARBONATE) [Concomitant]
  5. LEVEMIR(INSULIN DETEMIR) [Concomitant]
  6. PRAVASTATIN(PRAVASTATIN) [Concomitant]
  7. NOVOLOG(INSULIN ASPART) [Concomitant]
  8. ALLOPURINOL(ALLOPURINOL) [Concomitant]
  9. OMEPRAZOLE(OMEPRAZOLE) [Concomitant]
  10. MVI(MVI) [Concomitant]
  11. ASPIRIN(ACETYLSALICYLIC ACID) [Concomitant]
  12. DEXAMETHASONE(DEXAMETHASONE) [Concomitant]
  13. DIOVAN(VALSARTAN) [Concomitant]
  14. TOPROL XL (METOPROLOL SUCCINATE) [Concomitant]

REACTIONS (3)
  - Cerebrovascular accident [None]
  - Hip fracture [None]
  - Fall [None]
